FAERS Safety Report 16209721 (Version 3)
Quarter: 2019Q2

REPORT INFORMATION
  Report Type: Spontaneous
  Country: FR (occurrence: FR)
  Receive Date: 20190417
  Receipt Date: 20190524
  Transmission Date: 20190711
  Serious: Yes (Other)
  Sender: FDA-Public Use
  Company Number: FR-009507513-1904FRA006158

PATIENT
  Age: 67 Year
  Sex: Female

DRUGS (6)
  1. EMEND [Suspect]
     Active Substance: APREPITANT
     Indication: ANTIEMETIC SUPPORTIVE CARE
     Dosage: 125MG-80MG-80MG
     Route: 048
     Dates: start: 20190221, end: 20190223
  2. PREDNISOLONE. [Suspect]
     Active Substance: PREDNISOLONE
     Indication: ALLERGY PROPHYLAXIS
     Dosage: 40 MILLIGRAM, CYCLICAL
     Route: 048
     Dates: start: 20190221, end: 20190223
  3. ATROPINE SULFATE. [Suspect]
     Active Substance: ATROPINE SULFATE
     Indication: MUSCLE SPASMS
     Dosage: 0.25 MILLIGRAM, CYCLICAL
     Route: 058
     Dates: start: 20190221, end: 20190221
  4. AVASTIN [Suspect]
     Active Substance: BEVACIZUMAB
     Indication: COLORECTAL ADENOCARCINOMA
     Dosage: 245 MILLIGRAM, CYCLICAL
     Route: 042
     Dates: start: 20190221, end: 20190221
  5. ZOPHREN (ONDANSETRON HYDROCHLORIDE) [Suspect]
     Active Substance: ONDANSETRON HYDROCHLORIDE
     Indication: ANTIEMETIC SUPPORTIVE CARE
     Dosage: 8 MILLIGRAM, CYCLICAL
     Route: 048
     Dates: start: 20190221, end: 20190221
  6. IRINOTECAN HYDROCHLORIDE. [Suspect]
     Active Substance: IRINOTECAN HYDROCHLORIDE
     Indication: COLORECTAL ADENOCARCINOMA
     Dosage: 194 MILLIGRAM, CYCLICAL
     Route: 042
     Dates: start: 20190221, end: 20190221

REACTIONS (5)
  - Urticaria [Recovered/Resolved]
  - Nausea [Recovered/Resolved]
  - Hypersensitivity [Recovered/Resolved]
  - Hypertension [Recovered/Resolved]
  - Malaise [Recovered/Resolved]

NARRATIVE: CASE EVENT DATE: 20190221
